FAERS Safety Report 22629231 (Version 1)
Quarter: 2023Q2

REPORT INFORMATION
  Report Type: Spontaneous
  Country: US (occurrence: US)
  Receive Date: 20230622
  Receipt Date: 20230622
  Transmission Date: 20230721
  Serious: Yes (Hospitalization, Other)
  Sender: FDA-Public Use
  Company Number: US-ROCHE-2497250

PATIENT
  Sex: Female
  Weight: 148 kg

DRUGS (29)
  1. CLONAZEPAM [Suspect]
     Active Substance: CLONAZEPAM
     Indication: Anxiety
     Dosage: AS NEEDED FOR ANXIETY ;ONGOING: YES
     Route: 048
     Dates: start: 2018
  2. OCREVUS [Suspect]
     Active Substance: OCRELIZUMAB
     Indication: Primary progressive multiple sclerosis
     Dosage: 07/JUN/2018, 06/DEC/2018, 04/DEC/2019?DATE OF TREATMENT: 22/MAY/2023
     Route: 042
     Dates: start: 20180101
  3. OCREVUS [Suspect]
     Active Substance: OCRELIZUMAB
     Indication: Secondary progressive multiple sclerosis
     Dosage: 07/JUN/2018, 06/DEC/2018, 04/DEC/2019?DATE OF TREATMENT: 22/MAY/2023
     Route: 042
     Dates: start: 20180101
  4. OCREVUS [Suspect]
     Active Substance: OCRELIZUMAB
     Indication: Relapsing multiple sclerosis
     Dosage: 07/JUN/2018, 06/DEC/2018, 04/DEC/2019?DATE OF TREATMENT: 22/MAY/2023
     Route: 042
     Dates: start: 20180101
  5. TIZANIDINE [Concomitant]
     Active Substance: TIZANIDINE
     Indication: Muscle spasms
     Route: 048
     Dates: start: 2015
  6. BACLOFEN [Concomitant]
     Active Substance: BACLOFEN
     Indication: Muscle spasms
     Route: 048
     Dates: start: 201411
  7. GRALISE [Concomitant]
     Active Substance: GABAPENTIN
     Route: 048
     Dates: start: 201411
  8. PRIMIDONE [Concomitant]
     Active Substance: PRIMIDONE
     Indication: Neuralgia
     Route: 048
     Dates: start: 201411
  9. PROZAC [Concomitant]
     Active Substance: FLUOXETINE HYDROCHLORIDE
     Indication: Depression
     Route: 048
  10. BUSPIRONE [Concomitant]
     Active Substance: BUSPIRONE HYDROCHLORIDE
     Indication: Anxiety
     Route: 048
     Dates: start: 2018
  11. BUSPIRONE [Concomitant]
     Active Substance: BUSPIRONE HYDROCHLORIDE
     Indication: Post-traumatic stress disorder
     Route: 048
     Dates: start: 2018
  12. AMANTADINE [Concomitant]
     Active Substance: AMANTADINE
     Indication: Fatigue
     Route: 048
     Dates: start: 2015
  13. ARMODAFINIL [Concomitant]
     Active Substance: ARMODAFINIL
     Indication: Fatigue
     Route: 048
     Dates: start: 2015
  14. TRAMADOL [Concomitant]
     Active Substance: TRAMADOL
     Indication: Pain
     Dosage: AS NEEDED FOR PAIN
     Route: 048
     Dates: start: 2015
  15. POTASSIUM [Concomitant]
     Active Substance: POTASSIUM
     Indication: Muscle spasms
     Route: 048
     Dates: start: 2018
  16. POTASSIUM [Concomitant]
     Active Substance: POTASSIUM
     Indication: Oedema peripheral
     Route: 048
     Dates: start: 2018
  17. MAGNESIUM CITRATE [Concomitant]
     Active Substance: MAGNESIUM CITRATE
     Indication: Oedema peripheral
     Route: 048
     Dates: start: 2018
  18. MAGNESIUM CITRATE [Concomitant]
     Active Substance: MAGNESIUM CITRATE
     Indication: Muscle spasms
     Route: 048
     Dates: start: 2018
  19. VITAMIN D3 [Concomitant]
     Active Substance: CHOLECALCIFEROL
     Route: 048
     Dates: start: 2014
  20. CYANOCOBALAMIN\DEXPANTHENOL\NIACINAMIDE\PYRIDOXINE HYDROCHLORIDE\RIBOF [Concomitant]
     Active Substance: CYANOCOBALAMIN\DEXPANTHENOL\NIACINAMIDE\PYRIDOXINE HYDROCHLORIDE\RIBOFLAVIN 5^-PHOSPHATE SODIUM\THIA
     Dosage: AT BEDTIME ;
     Route: 048
     Dates: start: 201411
  21. NORTRIPTYLINE [Concomitant]
     Active Substance: NORTRIPTYLINE
     Indication: Muscle spasms
     Dosage: AT BEDTIME
     Route: 048
     Dates: start: 2014
  22. NORTRIPTYLINE [Concomitant]
     Active Substance: NORTRIPTYLINE
     Indication: Neuralgia
     Dosage: AT BEDTIME
     Route: 048
     Dates: start: 2014
  23. ZONISAMIDE [Concomitant]
     Active Substance: ZONISAMIDE
     Indication: Neuralgia
     Route: 048
     Dates: start: 2015
  24. DANTROLENE [Concomitant]
     Active Substance: DANTROLENE
     Route: 048
     Dates: start: 20200430
  25. GABAPENTIN [Concomitant]
     Active Substance: GABAPENTIN
     Indication: Neuralgia
     Dates: start: 2015
  26. ARIPIPRAZOLE [Concomitant]
     Active Substance: ARIPIPRAZOLE
     Indication: Anxiety
     Route: 048
     Dates: start: 2015
  27. ARIPIPRAZOLE [Concomitant]
     Active Substance: ARIPIPRAZOLE
     Indication: Depression
     Route: 048
     Dates: start: 2015
  28. FLUOXETINE [Concomitant]
     Active Substance: FLUOXETINE HYDROCHLORIDE
     Indication: Depression
     Route: 048
     Dates: start: 2015
  29. FLUOXETINE [Concomitant]
     Active Substance: FLUOXETINE HYDROCHLORIDE
     Indication: Anxiety
     Route: 048
     Dates: start: 2015

REACTIONS (29)
  - Gallbladder disorder [Recovered/Resolved]
  - Hemiparesis [Not Recovered/Not Resolved]
  - Oedema [Recovered/Resolved]
  - Nausea [Recovered/Resolved]
  - Headache [Recovered/Resolved]
  - Dysgeusia [Recovered/Resolved]
  - Alopecia [Not Recovered/Not Resolved]
  - Fatigue [Not Recovered/Not Resolved]
  - Memory impairment [Not Recovered/Not Resolved]
  - Muscle spasms [Not Recovered/Not Resolved]
  - Peroneal nerve palsy [Not Recovered/Not Resolved]
  - Pain [Not Recovered/Not Resolved]
  - Dysarthria [Not Recovered/Not Resolved]
  - Gait disturbance [Not Recovered/Not Resolved]
  - Amnesia [Not Recovered/Not Resolved]
  - Aphasia [Not Recovered/Not Resolved]
  - Weight increased [Not Recovered/Not Resolved]
  - Walking disability [Not Recovered/Not Resolved]
  - Dyspnoea [Not Recovered/Not Resolved]
  - Lymphadenopathy [Not Recovered/Not Resolved]
  - Dementia Alzheimer^s type [Not Recovered/Not Resolved]
  - Insomnia [Recovered/Resolved]
  - Mood swings [Recovered/Resolved]
  - Vomiting [Recovered/Resolved]
  - Hot flush [Recovered/Resolved]
  - Fall [Recovered/Resolved]
  - Asthenia [Recovered/Resolved]
  - Bone pain [Recovered/Resolved]
  - Fluid retention [Recovered/Resolved]

NARRATIVE: CASE EVENT DATE: 20180101
